FAERS Safety Report 6663933-1 (Version None)
Quarter: 2010Q2

REPORT INFORMATION
  Report Type: 
  Country: None (occurrence: None)
  Receive Date: 20100401
  Receipt Date: 20100329
  Transmission Date: 20101027
  Serious: Yes (Other)
  Sender: FDA-Public Use
  Company Number: US-ELI_LILLY_AND_COMPANY-US201003008139

PATIENT
  Sex: Female

DRUGS (1)
  1. BYETTA [Suspect]
     Dosage: UNK, UNKNOWN
     Dates: end: 20091201

REACTIONS (5)
  - NAUSEA [None]
  - PANCREATIC ENZYMES INCREASED [None]
  - RENAL CYST [None]
  - RENAL NEOPLASM [None]
  - WEIGHT DECREASED [None]
